FAERS Safety Report 22040806 (Version 1)
Quarter: 2023Q1

REPORT INFORMATION
  Report Type: Spontaneous
  Country: GR (occurrence: GR)
  Receive Date: 20230227
  Receipt Date: 20230227
  Transmission Date: 20230417
  Serious: Yes (Hospitalization)
  Sender: FDA-Public Use
  Company Number: GR-NORGINE LIMITED-NOR202300736

PATIENT
  Sex: Male
  Weight: 86 kg

DRUGS (24)
  1. DOCETAXEL [Suspect]
     Active Substance: DOCETAXEL
     Indication: Non-small cell lung cancer
     Dosage: 148.5 MG, QD
     Route: 042
     Dates: start: 20220823, end: 20220823
  2. DOCETAXEL [Suspect]
     Active Substance: DOCETAXEL
     Dosage: 108.9 MG, QD
     Route: 042
     Dates: start: 20221005, end: 20221005
  3. DOCETAXEL [Suspect]
     Active Substance: DOCETAXEL
     Dosage: 108.9 MG, QD
     Route: 042
     Dates: start: 20221024, end: 20221024
  4. DOCETAXEL [Suspect]
     Active Substance: DOCETAXEL
     Dosage: 108.9 MG, QD
     Route: 042
     Dates: start: 20221114, end: 20221114
  5. DOCETAXEL [Suspect]
     Active Substance: DOCETAXEL
     Dosage: 108.9 MG, QD
     Route: 042
     Dates: start: 20221229, end: 20221229
  6. DOCETAXEL [Suspect]
     Active Substance: DOCETAXEL
     Dosage: 108.9 MG, QD
     Route: 042
     Dates: start: 20221208, end: 20221208
  7. DOCETAXEL [Suspect]
     Active Substance: DOCETAXEL
     Dosage: 108.9 MG, QD
     Route: 042
     Dates: start: 20230119, end: 20230119
  8. SINTROM [Suspect]
     Active Substance: ACENOCOUMAROL
     Indication: Hypertension
     Dosage: UNK
     Route: 048
     Dates: start: 20161209, end: 20230127
  9. DEXAMETHASONE [Concomitant]
     Active Substance: DEXAMETHASONE
     Dosage: UNK
     Route: 065
     Dates: start: 20220907
  10. ROSUVASTATIN [Concomitant]
     Active Substance: ROSUVASTATIN
     Dosage: UNK
     Route: 065
     Dates: start: 20161209
  11. ONDANSETRON [Concomitant]
     Active Substance: ONDANSETRON
     Dosage: UNK
     Route: 065
     Dates: start: 20220907
  12. GRANULOCYTE COLONY-STIMULATING FACTOR NOS [Concomitant]
     Active Substance: GRANULOCYTE COLONY-STIMULATING FACTOR NOS
     Dosage: UNK
     Route: 065
     Dates: start: 20230126
  13. OMEPRAZOLE [Concomitant]
     Active Substance: OMEPRAZOLE
     Dosage: UNK
     Route: 065
     Dates: start: 20220907
  14. VASTAREL [Concomitant]
     Active Substance: TRIMETAZIDINE DIHYDROCHLORIDE
     Dosage: UNK
     Route: 065
     Dates: start: 20161209
  15. ENTRESTO [Concomitant]
     Active Substance: SACUBITRIL\VALSARTAN
     Dosage: UNK
     Route: 065
     Dates: start: 20161209
  16. MEDROL [Concomitant]
     Active Substance: METHYLPREDNISOLONE
     Dosage: UNK
     Route: 065
     Dates: start: 20220906
  17. ACETAMINOPHEN [Concomitant]
     Active Substance: ACETAMINOPHEN
     Dosage: UNK
     Route: 065
     Dates: start: 20230103
  18. NOXAFIL [Concomitant]
     Active Substance: POSACONAZOLE
     Dosage: UNK
     Route: 065
     Dates: start: 20230126
  19. RABEPRAZOLE SODIUM [Concomitant]
     Active Substance: RABEPRAZOLE SODIUM
     Dosage: UNK
     Route: 065
     Dates: start: 20170101
  20. VALTREX [Concomitant]
     Active Substance: VALACYCLOVIR HYDROCHLORIDE
     Dosage: UNK
     Route: 065
     Dates: start: 20230124
  21. ELEVEON [Concomitant]
     Dosage: UNK
     Route: 065
     Dates: start: 20161209
  22. LANSOPRAZOLE [Concomitant]
     Active Substance: LANSOPRAZOLE
     Dosage: UNK
     Route: 065
     Dates: start: 20220906
  23. EZETIMIBE [Concomitant]
     Active Substance: EZETIMIBE
     Dosage: UNK
     Route: 065
     Dates: start: 20161209
  24. DIMETHINDENE MALEATE [Concomitant]
     Active Substance: DIMETHINDENE MALEATE
     Dosage: UNK
     Route: 065
     Dates: start: 20220907

REACTIONS (2)
  - International normalised ratio increased [Recovered/Resolved]
  - Epistaxis [Recovered/Resolved]

NARRATIVE: CASE EVENT DATE: 20230127
